FAERS Safety Report 16216556 (Version 1)
Quarter: 2019Q2

REPORT INFORMATION
  Report Type: Spontaneous
  Country: SK (occurrence: SK)
  Receive Date: 20190419
  Receipt Date: 20190419
  Transmission Date: 20190711
  Serious: Yes (Life-Threatening, Hospitalization, Other)
  Sender: FDA-Public Use
  Company Number: SK-PFIZER INC-2019170046

PATIENT
  Age: 68 Year
  Sex: Female

DRUGS (2)
  1. METHOTREXATE SODIUM. [Suspect]
     Active Substance: METHOTREXATE SODIUM
     Dosage: 5 MG, DAILY
  2. METHOTREXATE SODIUM. [Suspect]
     Active Substance: METHOTREXATE SODIUM
     Indication: RHEUMATOID ARTHRITIS
     Dosage: 15 MG, WEEKLY

REACTIONS (12)
  - Body temperature increased [Not Recovered/Not Resolved]
  - Medication error [Not Recovered/Not Resolved]
  - Overdose [Not Recovered/Not Resolved]
  - Bone marrow failure [Not Recovered/Not Resolved]
  - Skin ulcer [Not Recovered/Not Resolved]
  - Inflammation [Not Recovered/Not Resolved]
  - Mouth ulceration [Not Recovered/Not Resolved]
  - Pancytopenia [Not Recovered/Not Resolved]
  - Haematuria [Not Recovered/Not Resolved]
  - Product use issue [Not Recovered/Not Resolved]
  - Sepsis [Not Recovered/Not Resolved]
  - Cough [Not Recovered/Not Resolved]
